FAERS Safety Report 20920341 (Version 2)
Quarter: 2022Q3

REPORT INFORMATION
  Report Type: Report from Study
  Country: US (occurrence: US)
  Receive Date: 20220606
  Receipt Date: 20220707
  Transmission Date: 20221027
  Serious: No
  Sender: FDA-Public Use
  Company Number: US-NOVARTISTESTPH-NVSC2022US129440

PATIENT
  Sex: Female

DRUGS (1)
  1. COSENTYX [Suspect]
     Active Substance: SECUKINUMAB
     Indication: Psoriasis
     Dosage: 300 MG, QW
     Route: 058

REACTIONS (6)
  - Injection site bruising [Unknown]
  - Pruritus [Unknown]
  - Skin plaque [Unknown]
  - Tooth infection [Unknown]
  - Sinusitis [Unknown]
  - Wrong technique in device usage process [Unknown]
